FAERS Safety Report 18919760 (Version 1)
Quarter: 2021Q1

REPORT INFORMATION
  Report Type: Spontaneous
  Country: CA (occurrence: CA)
  Receive Date: 20210221
  Receipt Date: 20210221
  Transmission Date: 20210420
  Serious: Yes (Life-Threatening, Hospitalization)
  Sender: FDA-Public Use
  Company Number: CA-JNJFOC-20210224246

PATIENT
  Age: 31 Year
  Sex: Female

DRUGS (1)
  1. PARACETAMOL [Suspect]
     Active Substance: ACETAMINOPHEN
     Indication: TOOTHACHE
     Route: 048

REACTIONS (9)
  - Tachycardia [Recovered/Resolved]
  - Hyperkalaemia [Recovered/Resolved]
  - Exposure during pregnancy [Unknown]
  - Palpitations [Recovered/Resolved]
  - Drug-induced liver injury [Recovered/Resolved]
  - Agitation [Recovered/Resolved]
  - Eclampsia [Recovered/Resolved]
  - Toxicity to various agents [Recovered/Resolved]
  - Metabolic acidosis [Recovered/Resolved]
